FAERS Safety Report 7806950-8 (Version None)
Quarter: 2011Q4

REPORT INFORMATION
  Report Type: 
  Country: None (occurrence: None)
  Receive Date: 20111011
  Receipt Date: 20111004
  Transmission Date: 20120403
  Serious: Yes (Other)
  Sender: FDA-Public Use
  Company Number: US-JNJFOC-20111002616

PATIENT
  Sex: Female
  Weight: 99.79 kg

DRUGS (3)
  1. DURAGESIC-100 [Suspect]
     Indication: BACK PAIN
     Route: 062
     Dates: start: 20040101
  2. PREMARIN [Concomitant]
     Route: 048
  3. PROZAC [Concomitant]
     Indication: DEPRESSION
     Route: 048

REACTIONS (4)
  - DRUG DOSE OMISSION [None]
  - HYPERTENSION [None]
  - HYPOTHYROIDISM [None]
  - PRODUCT PACKAGING QUANTITY ISSUE [None]
